FAERS Safety Report 14844262 (Version 1)
Quarter: 2018Q2

REPORT INFORMATION
  Report Type: Spontaneous
  Country: US (occurrence: US)
  Receive Date: 20180418
  Receipt Date: 20180418
  Transmission Date: 20180711
  Serious: Yes (Disabling)
  Sender: FDA-Public Use
  Company Number: None

PATIENT
  Age: 44 Year
  Sex: Female
  Weight: 85.05 kg

DRUGS (7)
  1. ALPRAZOLAM. [Concomitant]
     Active Substance: ALPRAZOLAM
  2. VITAMIN D3 [Concomitant]
     Active Substance: CHOLECALCIFEROL
  3. SERTRALINE [Concomitant]
     Active Substance: SERTRALINE HYDROCHLORIDE
  4. CETIRIZINE [Concomitant]
     Active Substance: CETIRIZINE HYDROCHLORIDE
  5. SERTRALINE [Suspect]
     Active Substance: SERTRALINE HYDROCHLORIDE
     Indication: ANXIETY
     Dosage: QUANTITY:135 TABLET(S); AT BEDTIME?
     Route: 048
     Dates: start: 20180101, end: 20180403
  6. PAROXETINE. [Concomitant]
     Active Substance: PAROXETINE
  7. SINGULAIR [Concomitant]
     Active Substance: MONTELUKAST SODIUM

REACTIONS (7)
  - Visual field defect [None]
  - Dry eye [None]
  - Therapy change [None]
  - Vision blurred [None]
  - Headache [None]
  - Migraine [None]
  - Hallucination, olfactory [None]

NARRATIVE: CASE EVENT DATE: 20180215
